FAERS Safety Report 9741419 (Version 3)
Quarter: 2013Q4

REPORT INFORMATION
  Report Type: Spontaneous
  Country: FR (occurrence: FR)
  Receive Date: 20131209
  Receipt Date: 20131224
  Transmission Date: 20140711
  Serious: Yes (Other)
  Sender: FDA-Public Use
  Company Number: PHHY2013FR142067

PATIENT
  Sex: Female

DRUGS (6)
  1. TEGRETOL [Suspect]
     Indication: EPILEPSY
     Dosage: 200 MG, TID
     Route: 048
     Dates: start: 2000
  2. GARDENAL//PHENOBARBITAL [Interacting]
     Dosage: 2 DF, QD
  3. LUMIGAN [Concomitant]
     Dosage: UNK UKN, BID
  4. DACUDOSES [Concomitant]
     Dosage: UNK UKN, QD
  5. REFRESH                            /00880201/ [Concomitant]
     Dosage: 1 GTT, TID
     Route: 047
  6. GINKGO BILOBA [Concomitant]
     Indication: MEMORY IMPAIRMENT
     Dosage: UNK UKN, TID

REACTIONS (4)
  - Meningioma [Not Recovered/Not Resolved]
  - Convulsion [Recovered/Resolved]
  - Fall [Recovered/Resolved]
  - Anticonvulsant drug level decreased [Not Recovered/Not Resolved]
